FAERS Safety Report 8785830 (Version 1)
Quarter: 2012Q4

REPORT INFORMATION
  Report Type: 
  Country: US (occurrence: US)
  Receive Date: 20120914
  Receipt Date: 20120914
  Transmission Date: 20130627
  Serious: No
  Sender: FDA-Public Use
  Company Number: US-MYLANLABS-2012S1015849

PATIENT
  Age: 72 Year
  Sex: Male

DRUGS (4)
  1. CLOPIDOGREL TABLETS USP [Suspect]
     Route: 048
     Dates: start: 20120709
  2. CRESTOR [Concomitant]
     Route: 048
  3. NORVASC [Concomitant]
     Route: 048
  4. BENICAR [Concomitant]
     Route: 048

REACTIONS (1)
  - Faeces discoloured [Not Recovered/Not Resolved]
